FAERS Safety Report 8077071-7 (Version None)
Quarter: 2012Q1

REPORT INFORMATION
  Report Type: 
  Country: None (occurrence: None)
  Receive Date: 20120127
  Receipt Date: 20120117
  Transmission Date: 20120608
  Serious: Yes (Life-Threatening)
  Sender: FDA-Public Use
  Company Number: AU-UCBSA-050026

PATIENT
  Age: 45 Year
  Sex: Female
  Weight: 113 kg

DRUGS (1)
  1. CIMZIA [Suspect]
     Indication: RHEUMATOID ARTHRITIS
     Route: 058
     Dates: start: 20111007, end: 20111031

REACTIONS (5)
  - URTICARIA [None]
  - SUICIDE ATTEMPT [None]
  - PRURITUS GENERALISED [None]
  - MOOD SWINGS [None]
  - DEPRESSION [None]
